FAERS Safety Report 7555408-2 (Version None)
Quarter: 2011Q2

REPORT INFORMATION
  Report Type: 
  Country: None (occurrence: None)
  Receive Date: 20110617
  Receipt Date: 20110602
  Transmission Date: 20111010
  Serious: No
  Sender: FDA-Public Use
  Company Number: US-B.I. PHARMACEUTICALS,INC./RIDGEFIELD-2011-BP-06288BP

PATIENT
  Age: 83 Year
  Sex: Male

DRUGS (10)
  1. CITRACAL [Concomitant]
     Indication: ARTHRITIS
     Dosage: 200 MG
  2. ASPIRIN [Concomitant]
     Indication: PROPHYLAXIS
     Dosage: 81 MG
  3. FLOMAX [Concomitant]
     Indication: PROSTATOMEGALY
     Dosage: 0.4 MG
     Dates: start: 20100101
  4. PRADAXA [Suspect]
     Indication: ATRIAL FIBRILLATION
     Dosage: 300 MG
     Route: 048
     Dates: start: 20110228, end: 20110421
  5. LEVOTHYROXINE SODIUM [Concomitant]
     Dosage: 0.025 MG
  6. LISINOPRIL [Concomitant]
     Indication: HYPERTENSION
     Dosage: 10 MG
  7. THYROXIN [Concomitant]
     Indication: HYPOTHYROIDISM
     Dosage: 25 MG
  8. AVODART [Concomitant]
     Indication: PROSTATOMEGALY
     Dosage: 0.5 MG
  9. LEVOSTATIN [Concomitant]
     Indication: HYPERTENSION
     Dosage: 20 MG
  10. COREG [Concomitant]
     Dosage: 6.25 MG

REACTIONS (8)
  - BALANCE DISORDER [None]
  - NIGHT SWEATS [None]
  - RECTAL HAEMORRHAGE [None]
  - HAEMOPTYSIS [None]
  - MENTAL IMPAIRMENT [None]
  - ANAL HAEMORRHAGE [None]
  - GAIT DISTURBANCE [None]
  - EPISTAXIS [None]
